FAERS Safety Report 14262501 (Version 1)
Quarter: 2017Q4

REPORT INFORMATION
  Report Type: Spontaneous
  Country: TW (occurrence: TW)
  Receive Date: 20171208
  Receipt Date: 20171208
  Transmission Date: 20180321
  Serious: No
  Sender: FDA-Public Use
  Company Number: TW-KYOWAKIRIN-2017BKK002246

PATIENT

DRUGS (2)
  1. SANCUSO [Suspect]
     Active Substance: GRANISETRON
     Indication: PRODUCT USED FOR UNKNOWN INDICATION
     Dosage: 1 DF, UNK
     Route: 062
     Dates: start: 201705, end: 201705
  2. SANCUSO [Suspect]
     Active Substance: GRANISETRON
     Dosage: 1 DF, UNK
     Route: 062
     Dates: start: 201704, end: 201704

REACTIONS (2)
  - Product adhesion issue [Recovered/Resolved]
  - Drug administered at inappropriate site [Recovered/Resolved]

NARRATIVE: CASE EVENT DATE: 201704
